FAERS Safety Report 5143355-5 (Version None)
Quarter: 2006Q4

REPORT INFORMATION
  Report Type: 
  Country: None (occurrence: None)
  Receive Date: 20061103
  Receipt Date: 20061025
  Transmission Date: 20070319
  Serious: Yes (Hospitalization)
  Sender: FDA-Public Use
  Company Number: PHBS2006BR16837

PATIENT
  Age: 67 Year
  Sex: Female
  Weight: 98 kg

DRUGS (6)
  1. SLOW-K [Suspect]
     Indication: MUSCLE SPASMS
     Dosage: 600 MG, BID
     Route: 048
  2. FORASEQ [Concomitant]
     Indication: RESPIRATORY DISORDER
     Dosage: FORM 12 / BUDES 400 UG/DAY
     Route: 048
     Dates: start: 20020101
  3. MODURETIC 5-50 [Concomitant]
     Dosage: UNK, QD
     Route: 048
     Dates: start: 20040101
  4. BALCOR [Concomitant]
     Indication: HYPERTENSION
     Dosage: 60 MG, BID
     Route: 048
     Dates: start: 20000101
  5. VERAPAMIL [Concomitant]
     Indication: BLOOD PRESSURE
     Dosage: 20 MG, QD
     Route: 048
     Dates: start: 20030101
  6. ENALAPRIL MALEATE [Concomitant]
     Indication: CARDIAC DISORDER
     Dosage: 20 MG, QD
     Route: 048
     Dates: start: 20020101

REACTIONS (8)
  - AGITATION [None]
  - BLOOD PRESSURE INADEQUATELY CONTROLLED [None]
  - HYPERTENSION [None]
  - INSOMNIA [None]
  - MALAISE [None]
  - MUSCLE SPASMS [None]
  - NERVOUSNESS [None]
  - RESPIRATORY DISORDER [None]
